FAERS Safety Report 19839163 (Version 3)
Quarter: 2022Q1

REPORT INFORMATION
  Report Type: Report from Study
  Country: CL (occurrence: None)
  Receive Date: 20210916
  Receipt Date: 20220103
  Transmission Date: 20220423
  Serious: Yes (Other)
  Sender: FDA-Public Use
  Company Number: CL-MERCK HEALTHCARE KGAA-9264593

PATIENT
  Age: 57 Year
  Sex: Female

DRUGS (1)
  1. REBIF [Suspect]
     Active Substance: INTERFERON BETA-1A
     Indication: Multiple sclerosis
     Route: 058
     Dates: start: 20170209

REACTIONS (5)
  - Fall [Not Recovered/Not Resolved]
  - Syncope [Not Recovered/Not Resolved]
  - Pain [Not Recovered/Not Resolved]
  - Head injury [Not Recovered/Not Resolved]
  - Buttock injury [Not Recovered/Not Resolved]

NARRATIVE: CASE EVENT DATE: 20211101
